FAERS Safety Report 8585665 (Version 29)
Quarter: 2017Q1

REPORT INFORMATION
  Report Type: Spontaneous
  Country: US (occurrence: US)
  Receive Date: 20120530
  Receipt Date: 20170307
  Transmission Date: 20170429
  Serious: Yes (Life-Threatening, Hospitalization, Other)
  Sender: FDA-Public Use
  Company Number: US-GLAXOSMITHKLINE-A0966589A

PATIENT
  Age: 38 Year
  Sex: Female

DRUGS (22)
  1. FLOLAN [Suspect]
     Active Substance: EPOPROSTENOL SODIUM
     Dosage: UNK
     Dates: start: 20060626
  2. FLOLAN [Suspect]
     Active Substance: EPOPROSTENOL SODIUM
     Dosage: 86 DF, CO
  3. AMBRISENTAN [Concomitant]
     Active Substance: AMBRISENTAN
  4. LETAIRIS [Concomitant]
     Active Substance: AMBRISENTAN
  5. FLOLAN [Suspect]
     Active Substance: EPOPROSTENOL SODIUM
     Dosage: 84 DF, CO
     Route: 042
  6. FLOLAN [Suspect]
     Active Substance: EPOPROSTENOL SODIUM
     Dosage: 84 DF, CO
     Route: 042
  7. LASIX [Suspect]
     Active Substance: FUROSEMIDE
     Dosage: UNK, U
  8. COUMADIN [Concomitant]
     Active Substance: WARFARIN SODIUM
  9. FLOLAN [Suspect]
     Active Substance: EPOPROSTENOL SODIUM
     Indication: PULMONARY ARTERIAL HYPERTENSION
     Dosage: 80 DF, CO
     Route: 042
     Dates: start: 20060603
  10. FLOLAN [Suspect]
     Active Substance: EPOPROSTENOL SODIUM
     Dosage: UNK
     Dates: start: 20060626
  11. FLOLAN [Suspect]
     Active Substance: EPOPROSTENOL SODIUM
     Dosage: UNK
  12. FLOLAN [Suspect]
     Active Substance: EPOPROSTENOL SODIUM
     Dosage: 85 DF, CO
     Route: 042
  13. FLOLAN [Suspect]
     Active Substance: EPOPROSTENOL SODIUM
     Indication: PULMONARY ARTERIAL HYPERTENSION
     Dosage: UNK
  14. PENICILLIN [Suspect]
     Active Substance: PENICILLIN
     Indication: PRODUCT USED FOR UNKNOWN INDICATION
     Dosage: UNKNOWN
     Route: 065
  15. FLOLAN [Suspect]
     Active Substance: EPOPROSTENOL SODIUM
     Dosage: UNK
     Dates: start: 20060626
  16. FLOLAN [Suspect]
     Active Substance: EPOPROSTENOL SODIUM
     Dosage: UNK
     Dates: start: 20060626
  17. FLOLAN [Suspect]
     Active Substance: EPOPROSTENOL SODIUM
     Dosage: 86 DF, CO
     Dates: start: 20060703
  18. REVATIO [Concomitant]
     Active Substance: SILDENAFIL CITRATE
  19. FLOLAN [Suspect]
     Active Substance: EPOPROSTENOL SODIUM
     Dosage: 85 DF, CO
  20. FLOLAN [Suspect]
     Active Substance: EPOPROSTENOL SODIUM
     Dosage: 86 DF, CO
     Route: 042
     Dates: start: 20161215
  21. TRACLEER [Concomitant]
     Active Substance: BOSENTAN
  22. FLOLAN [Suspect]
     Active Substance: EPOPROSTENOL SODIUM
     Dosage: 84 DF, CO
     Route: 042

REACTIONS (19)
  - Emergency care [Recovering/Resolving]
  - Gastrostomy tube site complication [Unknown]
  - Abdominal pain [Unknown]
  - Infection [Unknown]
  - Lung transplant [Unknown]
  - Hospitalisation [Unknown]
  - Sinusitis [Unknown]
  - Hot flush [Unknown]
  - Infective tenosynovitis [Unknown]
  - Syncope [Unknown]
  - Dehydration [Unknown]
  - Central venous catheter removal [Unknown]
  - Central venous catheterisation [Unknown]
  - Chest pain [Unknown]
  - Dizziness [Unknown]
  - Localised infection [Unknown]
  - Sepsis [Recovered/Resolved]
  - Drug hypersensitivity [Unknown]
  - Device leakage [Unknown]

NARRATIVE: CASE EVENT DATE: 20130405
